FAERS Safety Report 15856100 (Version 1)
Quarter: 2019Q1

REPORT INFORMATION
  Report Type: Report from Study
  Country: None (occurrence: US)
  Receive Date: 20190123
  Receipt Date: 20190123
  Transmission Date: 20190417
  Serious: Yes (Other)
  Sender: FDA-Public Use
  Company Number: US-ABBVIE-19S-163-2629904-00

PATIENT
  Age: 84 Year
  Sex: Male

DRUGS (1)
  1. LUPRON DEPOT [Suspect]
     Active Substance: LEUPROLIDE ACETATE
     Indication: PRODUCT USED FOR UNKNOWN INDICATION
     Route: 050

REACTIONS (8)
  - Cardiac operation [Unknown]
  - Pulmonary embolism [Unknown]
  - Renal cell carcinoma [Unknown]
  - Coronary artery bypass [Unknown]
  - Peripheral artery bypass [Unknown]
  - Appendicectomy [Unknown]
  - Coronary artery disease [Unknown]
  - Renal mass [Unknown]

NARRATIVE: CASE EVENT DATE: 2006
